FAERS Safety Report 8908308 (Version 2)
Quarter: 2012Q4

REPORT INFORMATION
  Report Type: 
  Country: US (occurrence: US)
  Receive Date: 20121114
  Receipt Date: 20121203
  Transmission Date: 20130627
  Serious: Yes (Other)
  Sender: FDA-Public Use
  Company Number: US-JNJFOC-20121103855

PATIENT
  Age: 80 Year
  Sex: Female
  Weight: 47.17 kg

DRUGS (1)
  1. EXTRA STRENGTH TYLENOL PM [Suspect]
     Indication: SLEEP DISORDER THERAPY
     Dosage: half caplet, every night
     Route: 048
     Dates: start: 20090131

REACTIONS (2)
  - Dependence [Unknown]
  - Intentional drug misuse [Unknown]
